FAERS Safety Report 24867968 (Version 1)
Quarter: 2025Q1

REPORT INFORMATION
  Report Type: Spontaneous
  Country: BR (occurrence: BR)
  Receive Date: 20250121
  Receipt Date: 20250121
  Transmission Date: 20250409
  Serious: Yes (Hospitalization, Other)
  Sender: Norvium Bioscience
  Company Number: BR-Norvium Bioscience LLC-079788

PATIENT
  Age: 24 Year
  Sex: Female

DRUGS (4)
  1. ZOLPIDEM TARTRATE [Suspect]
     Active Substance: ZOLPIDEM TARTRATE
     Indication: Product used for unknown indication
     Route: 048
  2. CLONAZEPAM [Suspect]
     Active Substance: CLONAZEPAM
     Indication: Product used for unknown indication
  3. ZOLPIDEM TARTRATE [Suspect]
     Active Substance: ZOLPIDEM TARTRATE
     Indication: Product used for unknown indication
     Route: 048
  4. ZOLPIDEM TARTRATE [Suspect]
     Active Substance: ZOLPIDEM TARTRATE
     Indication: Product used for unknown indication
     Dosage: USE OF ZOLPIDEM EPISODES RANGED FROM 20-600 MG/DAY, WITH A PEAK INTAKE OF 800 MG IN A SINGLE DAY.
     Route: 048

REACTIONS (9)
  - Drug abuse [Unknown]
  - Drug dependence [Unknown]
  - Somnolence [Unknown]
  - Dissociative disorder [Unknown]
  - Fall [Unknown]
  - Amnesia [Unknown]
  - Disturbance in attention [Unknown]
  - Drug tolerance [Unknown]
  - Social problem [Unknown]
